APPROVED DRUG PRODUCT: LINCOMYCIN HYDROCHLORIDE
Active Ingredient: LINCOMYCIN HYDROCHLORIDE
Strength: EQ 300MG BASE/ML
Dosage Form/Route: INJECTABLE;INJECTION
Application: A212770 | Product #001 | TE Code: AP
Applicant: ARTHUR GROUP LLC
Approved: Mar 12, 2021 | RLD: No | RS: No | Type: RX